FAERS Safety Report 4483115-1 (Version None)
Quarter: 2004Q3

REPORT INFORMATION
  Report Type: 
  Country: None (occurrence: None)
  Receive Date: 20040921
  Receipt Date: 20040603
  Transmission Date: 20050211
  Serious: Yes (Hospitalization)
  Sender: FDA-Public Use
  Company Number: 163-20785-04060297

PATIENT
  Age: 67 Year
  Sex: Female
  Weight: 77.3 kg

DRUGS (7)
  1. THALOMID [Suspect]
     Indication: MULTIPLE MYELOMA
     Dosage: 200 MG, DAILY, ORAL
     Route: 048
     Dates: start: 20040525, end: 20040527
  2. CISPLATIN [Suspect]
     Indication: MULTIPLE MYELOMA
     Dosage: 17 MG, DAILY, INTRAVENOUS
     Route: 042
     Dates: start: 20040525, end: 20040527
  3. ADRIAMYCIN PFS [Suspect]
     Indication: MULTIPLE MYELOMA
     Dosage: 17 MG, DAILY, INTRAVENOUS
     Route: 042
     Dates: start: 20040525, end: 20040527
  4. CYCLOPHOSPHAMIDE [Concomitant]
     Indication: MULTIPLE MYELOMA
     Dosage: 664 MG, DAILY, INTRAVENOUS
     Route: 042
     Dates: start: 20040525, end: 20040527
  5. ETOPOSIDE [Suspect]
     Indication: MULTIPLE MYELOMA
     Dosage: 66 MG, DAILY, INTRAVENOUS
     Route: 042
     Dates: start: 20040525, end: 20040527
  6. DEXAMETHASONE [Suspect]
     Indication: MULTIPLE MYELOMA
     Dosage: 40 MG, DAILY, ORAL
     Route: 048
     Dates: start: 20040525, end: 20040527
  7. BORTEZOMIB (BORTEZOMIB) [Suspect]
     Indication: MULTIPLE MYELOMA
     Dosage: 1.7 MG, INTRAVENOUS
     Route: 042
     Dates: start: 20040522, end: 20040525

REACTIONS (5)
  - DIZZINESS [None]
  - HEADACHE [None]
  - HYPONATRAEMIA [None]
  - INAPPROPRIATE ANTIDIURETIC HORMONE SECRETION [None]
  - NAUSEA [None]
